FAERS Safety Report 6646391-2 (Version None)
Quarter: 2010Q1

REPORT INFORMATION
  Report Type: 
  Country: None (occurrence: None)
  Receive Date: 20100323
  Receipt Date: 20070227
  Transmission Date: 20100710
  Serious: No
  Sender: FDA-Public Use
  Company Number: IL-ROCHE-484376

PATIENT
  Age: 35 Year
  Sex: Female
  Weight: 66 kg

DRUGS (1)
  1. TAMIFLU [Suspect]
     Indication: INFLUENZA
     Route: 048
     Dates: start: 20070125, end: 20070129

REACTIONS (2)
  - NO ADVERSE EVENT [None]
  - PREGNANCY [None]
